FAERS Safety Report 9805887 (Version 3)
Quarter: 2014Q2

REPORT INFORMATION
  Report Type: Report from Study
  Country: US (occurrence: US)
  Receive Date: 20140109
  Receipt Date: 20140411
  Transmission Date: 20141212
  Serious: Yes (Life-Threatening)
  Sender: FDA-Public Use
  Company Number: US-ROCHE-1330501

PATIENT
  Age: 47 Year
  Sex: Female
  Weight: 56.3 kg

DRUGS (13)
  1. TRASTUZUMAB [Suspect]
     Indication: BREAST CANCER
     Dosage: RECEIVED MG/KG IV OVER 90 MIN ON DAY 1 WK 1 ONLY
     Route: 042
     Dates: start: 20121003
  2. TRASTUZUMAB [Suspect]
     Dosage: RECEIVED IV TRASTUZUMAB OVER 30 MIN WEEKLY X 11 DOSES
     Route: 042
  3. TRASTUZUMAB [Suspect]
     Dosage: RECEIVED IV TRASTUZUMAB OVER 30-90 MIN ON DAY 1 Q 3 WEEKS UNTIL 1 YEAR AFTER FIRST TRASTUZUMAB DOSE.
     Route: 042
  4. DOXORUBICINE [Suspect]
     Indication: BREAST CANCER
     Dosage: OVER 15 MIN ON DAY 1 X 4 CYCLE.  LAST DOSE RECEIVED ON 14/NOV/2012.
     Route: 042
     Dates: start: 20121003
  5. CYCLOPHOSPHAMIDE [Suspect]
     Indication: BREAST CANCER
     Dosage: IV OVER 30 MIN ON DAY 1 X 4 CYCLES. LAST DOSE RECEIVED ON 14/NOV/2012
     Route: 042
     Dates: start: 20121003
  6. PACLITAXEL [Suspect]
     Indication: BREAST CANCER
     Dosage: IV OVER 60 MIN, WEEKLY X 12 DOSES. LAST DOSE RECEIVED ON 13/FEB/2013
     Route: 042
     Dates: start: 20121003
  7. LIDOCAINE [Suspect]
     Indication: PRODUCT USED FOR UNKNOWN INDICATION
     Route: 065
  8. DECADRON [Concomitant]
  9. FENTANYL [Concomitant]
  10. PROPOFOL [Concomitant]
  11. TAMOXIFEN [Concomitant]
  12. VERSED (INJ) [Concomitant]
     Route: 065
  13. ZEMURON [Concomitant]

REACTIONS (1)
  - Cardiac arrest [Recovered/Resolved]
